FAERS Safety Report 16142325 (Version 1)
Quarter: 2019Q2

REPORT INFORMATION
  Report Type: Spontaneous
  Country: US (occurrence: US)
  Receive Date: 20190401
  Receipt Date: 20190401
  Transmission Date: 20190711
  Serious: No
  Sender: FDA-Public Use
  Company Number: US-SA-2019SA088531

PATIENT
  Age: 27 Year
  Sex: Female
  Weight: 113.3 kg

DRUGS (21)
  1. NORMAL SALINE [Concomitant]
     Active Substance: SODIUM CHLORIDE
     Dosage: 0.9 % AS DIRECTED
     Route: 042
     Dates: start: 20171130
  2. STERILE WATER [Concomitant]
     Active Substance: WATER
     Dosage: 1 DOSE AS DIRECTED
     Route: 042
     Dates: start: 20171130
  3. EPINEPHRINE. [Concomitant]
     Active Substance: EPINEPHRINE
     Indication: ANAPHYLACTIC REACTION
     Dosage: 0.3 MG; AS NEEDED
     Route: 030
     Dates: start: 20171130
  4. LAMICTAL [Concomitant]
     Active Substance: LAMOTRIGINE
     Dosage: 1 TABLET, QD
     Route: 048
     Dates: start: 20170724
  5. SPIRONOLACTONE. [Concomitant]
     Active Substance: SPIRONOLACTONE
     Dosage: 1 TABLET, BID
     Route: 048
     Dates: start: 20170124
  6. LAMOTRIGINE. [Concomitant]
     Active Substance: LAMOTRIGINE
     Dosage: 1 TABL, QD
     Route: 048
     Dates: start: 20160817
  7. METFORMIN [Concomitant]
     Active Substance: METFORMIN HYDROCHLORIDE
     Dosage: 100 MG, QD AT BEDTIME
     Route: 048
     Dates: start: 20180124
  8. METFORMIN [Concomitant]
     Active Substance: METFORMIN HYDROCHLORIDE
     Dosage: 1 TAB, QD
     Route: 048
     Dates: start: 20180224
  9. FIBER [Concomitant]
     Active Substance: PSYLLIUM HUSK
     Dosage: 1 DOSE, QD
     Route: 048
     Dates: start: 20180224
  10. SODIUM CHLORIDE. [Concomitant]
     Active Substance: SODIUM CHLORIDE
     Indication: FLUSHING
     Dosage: 0.9 %; AS DIRECTED
     Route: 042
     Dates: start: 20171130
  11. REXULTI [Concomitant]
     Active Substance: BREXPIPRAZOLE
     Dosage: 1 MG, QD
     Route: 048
     Dates: start: 20180405
  12. GABAPENTIN. [Concomitant]
     Active Substance: GABAPENTIN
     Dosage: 4 CAPS; BID
     Route: 048
     Dates: start: 20180224
  13. DIPHENHYDRAMINE. [Concomitant]
     Active Substance: DIPHENHYDRAMINE
     Indication: ANAPHYLACTIC REACTION
     Dosage: 25MG/50MG/ML; MONTHLY AS NEEDED
     Route: 048
     Dates: start: 20171130
  14. SOLU-MEDROL [Concomitant]
     Active Substance: METHYLPREDNISOLONE SODIUM SUCCINATE
     Indication: ANAPHYLACTIC REACTION
     Dosage: 105 MG; AS NEEDED
     Route: 042
     Dates: start: 20171130
  15. TYLENOL [Concomitant]
     Active Substance: ACETAMINOPHEN
     Dosage: 1 TAB BY MOUTH AS NEEDED
     Route: 048
     Dates: start: 20150211
  16. FABRAZYME [Suspect]
     Active Substance: AGALSIDASE BETA
     Indication: FABRY^S DISEASE
     Dosage: 0.92 MG/KG, EVERY TWO WEEKS
     Route: 041
  17. XANAX [Concomitant]
     Active Substance: ALPRAZOLAM
     Indication: ANAPHYLACTIC REACTION
     Dosage: 1TABLET 2-3 TIMES DAILY AS NEEDED
     Route: 048
     Dates: start: 20170810
  18. OMEPRAZOLE. [Concomitant]
     Active Substance: OMEPRAZOLE
     Dosage: 1 CAP, QD
     Route: 048
     Dates: start: 20160405
  19. DULOXETINE. [Concomitant]
     Active Substance: DULOXETINE
     Dosage: 1 CAP; DAILY
     Route: 048
     Dates: start: 20180224
  20. MUCINEX [Concomitant]
     Active Substance: GUAIFENESIN
     Dosage: 1 TAB; AS NEEDED
     Route: 048
     Dates: start: 20180224
  21. MONONESSA [Concomitant]
     Active Substance: ETHINYL ESTRADIOL\NORGESTIMATE
     Dosage: 1 TAB, QD
     Route: 048
     Dates: start: 20150324

REACTIONS (1)
  - Cardiac disorder [Unknown]
